FAERS Safety Report 5576621-X (Version None)
Quarter: 2007Q4

REPORT INFORMATION
  Report Type: 
  Country: None (occurrence: None)
  Receive Date: 20071228
  Receipt Date: 20071217
  Transmission Date: 20080405
  Serious: Yes (Hospitalization)
  Sender: FDA-Public Use
  Company Number: JP-BAYER-200710994BYL

PATIENT
  Age: 68 Year
  Sex: Male
  Weight: 65 kg

DRUGS (5)
  1. ASPIRIN [Suspect]
     Indication: CAROTID ARTERIOSCLEROSIS
     Dosage: TOTAL DAILY DOSE: 100 MG  UNIT DOSE: 100 MG
     Route: 048
     Dates: start: 20040602, end: 20040713
  2. CYANOCOBALAMIN [Concomitant]
     Indication: NERVE INJURY
     Dosage: TOTAL DAILY DOSE: 1.5 MG
     Route: 048
  3. LIPOCLIN [Concomitant]
     Indication: HYPERLIPIDAEMIA
     Dosage: TOTAL DAILY DOSE: 600 MG
     Route: 048
  4. ALTAT [Concomitant]
     Indication: GASTRIC ULCER
     Dosage: TOTAL DAILY DOSE: 75 MG
     Route: 048
  5. MELBIN [Concomitant]
     Dosage: TOTAL DAILY DOSE: 250 MG
     Route: 048

REACTIONS (1)
  - SUBDURAL HAEMATOMA [None]
